FAERS Safety Report 8358506-9 (Version None)
Quarter: 2012Q2

REPORT INFORMATION
  Report Type: 
  Country: None (occurrence: None)
  Receive Date: 20120514
  Receipt Date: 20120508
  Transmission Date: 20120825
  Serious: Yes (Other)
  Sender: FDA-Public Use
  Company Number: US-PFIZER INC-2012112357

PATIENT
  Sex: Male
  Weight: 99.773 kg

DRUGS (2)
  1. LATANOPROST [Suspect]
     Indication: GLAUCOMA
     Dosage: 1 GTT IN EACH EYE DAILY
     Dates: end: 20120101
  2. CELLCEPT [Concomitant]
     Indication: MUSCULAR WEAKNESS
     Dosage: 1500 MG, 2X/DAY

REACTIONS (3)
  - EYE INFLAMMATION [None]
  - EYELID PTOSIS [None]
  - BLEPHARITIS [None]
